FAERS Safety Report 14160575 (Version 2)
Quarter: 2018Q1

REPORT INFORMATION
  Report Type: Spontaneous
  Country: US (occurrence: US)
  Receive Date: 20171104
  Receipt Date: 20180207
  Transmission Date: 20180508
  Serious: No
  Sender: FDA-Public Use
  Company Number: US-TEVA-820746USA

PATIENT
  Sex: Female

DRUGS (1)
  1. COPAXONE [Suspect]
     Active Substance: GLATIRAMER ACETATE
     Dates: start: 201609, end: 201709

REACTIONS (6)
  - Injection site pain [Recovered/Resolved]
  - Injection site erythema [Recovered/Resolved]
  - Injection site atrophy [Not Recovered/Not Resolved]
  - Injection site urticaria [Unknown]
  - Injection site bruising [Unknown]
  - Injection site discolouration [Unknown]

NARRATIVE: CASE EVENT DATE: 201609
